FAERS Safety Report 4632762-2 (Version None)
Quarter: 2005Q2

REPORT INFORMATION
  Report Type: 
  Country: None (occurrence: None)
  Receive Date: 20050412
  Receipt Date: 20050401
  Transmission Date: 20051028
  Serious: Yes (Other)
  Sender: FDA-Public Use
  Company Number: BE-ABBOTT-05P-013-0296287-00

PATIENT
  Sex: Female
  Weight: 70 kg

DRUGS (2)
  1. REDUCTIL [Suspect]
     Indication: OVERWEIGHT
     Route: 048
     Dates: start: 20040615, end: 20040715
  2. REDUCTIL [Suspect]
     Route: 048
     Dates: start: 20040715, end: 20040815

REACTIONS (3)
  - CARDIAC FAILURE [None]
  - DYSPNOEA [None]
  - PULMONARY HYPERTENSION [None]
